FAERS Safety Report 9192191 (Version 1)
Quarter: 2013Q1

REPORT INFORMATION
  Report Type: Spontaneous
  Country: US (occurrence: None)
  Receive Date: 20130326
  Receipt Date: 20130326
  Transmission Date: 20140127
  Serious: Yes (Other)
  Sender: FDA-Public Use
  Company Number: None

PATIENT
  Age: 61 Year
  Sex: Male
  Weight: 96.62 kg

DRUGS (1)
  1. ANDROGEL [Suspect]
     Route: 061

REACTIONS (3)
  - Skin exfoliation [None]
  - Excoriation [None]
  - Laceration [None]
